FAERS Safety Report 7535530-7 (Version None)
Quarter: 2011Q2

REPORT INFORMATION
  Report Type: 
  Country: None (occurrence: None)
  Receive Date: 20110609
  Receipt Date: 20110112
  Transmission Date: 20111010
  Serious: Yes (Hospitalization, Other)
  Sender: FDA-Public Use
  Company Number: US-BAYER-201037461NA

PATIENT
  Age: 23 Year
  Sex: Female
  Weight: 77.098 kg

DRUGS (8)
  1. COUMADIN [Concomitant]
     Indication: DEEP VEIN THROMBOSIS
  2. PROPYLTHIOURACIL [Concomitant]
  3. METHIMAZOLE [Concomitant]
  4. YASMIN [Suspect]
     Indication: PRODUCT USED FOR UNKNOWN INDICATION
     Route: 048
     Dates: start: 20060926, end: 20070101
  5. TAPAZOLE [Concomitant]
     Indication: HYPERTHYROIDISM
     Dosage: 10 MG, OM
     Route: 048
  6. YAZ [Suspect]
     Indication: PRODUCT USED FOR UNKNOWN INDICATION
     Route: 048
     Dates: start: 20060926, end: 20070101
  7. DROSPIRENONE AND ETHINYL ESTRADIOL [Suspect]
     Indication: PRODUCT USED FOR UNKNOWN INDICATION
     Route: 048
     Dates: start: 20060926, end: 20070101
  8. TAPAZOLE [Concomitant]
     Dosage: 5 MG, HS

REACTIONS (4)
  - DEEP VEIN THROMBOSIS [None]
  - PAIN [None]
  - EMOTIONAL DISTRESS [None]
  - INJURY [None]
